FAERS Safety Report 14240616 (Version 2)
Quarter: 2017Q4

REPORT INFORMATION
  Report Type: Spontaneous
  Country: CH (occurrence: CH)
  Receive Date: 20171130
  Receipt Date: 20171205
  Transmission Date: 20180321
  Serious: Yes (Hospitalization, Other)
  Sender: FDA-Public Use
  Company Number: CH-PFIZER INC-2017506502

PATIENT
  Age: 77 Year
  Sex: Male

DRUGS (12)
  1. ALDACTONE [Suspect]
     Active Substance: SPIRONOLACTONE
     Indication: HYPERTENSION
     Dosage: 25 MG, 1X/DAY
     Route: 048
     Dates: start: 2012
  2. TAZOBAC [Suspect]
     Active Substance: PIPERACILLIN SODIUM\TAZOBACTAM SODIUM
     Dosage: 4.5 MG, ONCE EVERY 8 HOURS
     Route: 041
     Dates: start: 20160128
  3. VESICARE [Concomitant]
     Active Substance: SOLIFENACIN SUCCINATE
     Dosage: UNK
     Dates: end: 201602
  4. TOREM /01036501/ [Suspect]
     Active Substance: TORSEMIDE
     Indication: HYPERTENSION
     Dosage: 2.5 MG, 1X/DAY
     Route: 048
     Dates: start: 20150601, end: 201710
  5. SYMFONA N (GINKGO BILOBA EXTRACT) [Suspect]
     Active Substance: GINKGO
     Indication: COGNITIVE DISORDER
     Dosage: UNK
     Route: 048
     Dates: start: 201705, end: 201710
  6. ASPIRIN CARDIO [Suspect]
     Active Substance: ASPIRIN
     Dosage: 100 MG, 1X/DAY
     Route: 048
  7. XARELTO [Suspect]
     Active Substance: RIVAROXABAN
     Indication: ATRIAL FIBRILLATION
     Dosage: 20 MG, 1X/DAY
     Route: 048
     Dates: start: 201601
  8. PREDNISONE. [Suspect]
     Active Substance: PREDNISONE
     Dosage: 40 MG, 1X/DAY
     Route: 048
     Dates: start: 20170102, end: 20170107
  9. EUTHYROX [Concomitant]
     Active Substance: LEVOTHYROXINE SODIUM
     Dosage: UNK
     Dates: start: 1988
  10. SERETIDE [Concomitant]
     Active Substance: FLUTICASONE PROPIONATE\SALMETEROL XINAFOATE
     Dosage: 2 PUFFS/D
     Dates: start: 2016, end: 2016
  11. NEXIUM [Suspect]
     Active Substance: ESOMEPRAZOLE MAGNESIUM
     Indication: MELAENA
     Dosage: 40 MG, 1X/DAY
     Route: 048
  12. CORDARONE [Suspect]
     Active Substance: AMIODARONE HYDROCHLORIDE
     Indication: ATRIAL FIBRILLATION
     Dosage: UNK
     Route: 048
     Dates: start: 201202, end: 201602

REACTIONS (15)
  - Clostridium difficile colitis [Recovered/Resolved]
  - Condition aggravated [Unknown]
  - Prostatitis [Unknown]
  - Upper gastrointestinal haemorrhage [Recovered/Resolved]
  - Chronic obstructive pulmonary disease [Unknown]
  - Haematuria [Unknown]
  - Respiratory failure [Unknown]
  - Pancreatitis [Unknown]
  - Orchitis [Unknown]
  - Alcoholic pancreatitis [Unknown]
  - Rash maculo-papular [Recovering/Resolving]
  - Bradycardia [Recovered/Resolved]
  - Lung infection [Unknown]
  - Bronchitis [Unknown]
  - Haematuria [None]

NARRATIVE: CASE EVENT DATE: 20120128
